FAERS Safety Report 22518980 (Version 1)
Quarter: 2023Q2

REPORT INFORMATION
  Report Type: Other
  Country: US (occurrence: US)
  Receive Date: 20230605
  Receipt Date: 20230605
  Transmission Date: 20230721
  Serious: Yes (Hospitalization, Other)
  Sender: FDA-Public Use
  Company Number: US-Bion-011658

PATIENT
  Age: 56 Year
  Sex: Male

DRUGS (1)
  1. IBUPROFEN [Suspect]
     Active Substance: IBUPROFEN
     Indication: Back pain
     Dosage: 200-400 MG

REACTIONS (6)
  - Throat tightness [Recovered/Resolved]
  - Kounis syndrome [Recovered/Resolved]
  - Dysphagia [Recovered/Resolved]
  - Paranasal sinus discomfort [Recovered/Resolved]
  - Labelled drug-food interaction issue [Unknown]
  - Anaphylactic reaction [Recovered/Resolved]
